FAERS Safety Report 22365746 (Version 1)
Quarter: 2023Q2

REPORT INFORMATION
  Report Type: Spontaneous
  Country: US (occurrence: US)
  Receive Date: 20230525
  Receipt Date: 20230525
  Transmission Date: 20230722
  Serious: No
  Sender: FDA-Public Use
  Company Number: US-EPICPHARMA-US-2023EPCSPO00860

PATIENT
  Age: 66 Year
  Sex: Male

DRUGS (42)
  1. FUROSEMIDE [Suspect]
     Active Substance: FUROSEMIDE
     Indication: Psoriasis
     Route: 048
  2. FUROSEMIDE [Suspect]
     Active Substance: FUROSEMIDE
     Indication: Psoriatic arthropathy
  3. HYDROCORTISONE [Concomitant]
     Active Substance: HYDROCORTISONE
     Indication: Psoriasis
     Route: 065
  4. HYDROCORTISONE [Concomitant]
     Active Substance: HYDROCORTISONE
     Indication: Psoriatic arthropathy
  5. ALBUTEROL SULFATE [Concomitant]
     Active Substance: ALBUTEROL SULFATE
     Indication: Psoriasis
     Dosage: 105 ?G (MICROGRAM)
     Route: 065
  6. ALBUTEROL SULFATE [Concomitant]
     Active Substance: ALBUTEROL SULFATE
     Indication: Psoriatic arthropathy
  7. ALFUZOSIN [Concomitant]
     Active Substance: ALFUZOSIN
     Indication: Psoriasis
     Route: 048
  8. ALFUZOSIN [Concomitant]
     Active Substance: ALFUZOSIN
     Indication: Psoriatic arthropathy
  9. ASPIRIN [Concomitant]
     Active Substance: ASPIRIN
     Indication: Psoriasis
     Route: 048
  10. ASPIRIN [Concomitant]
     Active Substance: ASPIRIN
     Indication: Psoriatic arthropathy
  11. BETAMETHASONE [Concomitant]
     Active Substance: BETAMETHASONE
     Indication: Psoriasis
     Dosage: AUGMENTED BETAMETHASONE DIPROPIONATE
     Route: 065
  12. BETAMETHASONE [Concomitant]
     Active Substance: BETAMETHASONE
     Indication: Psoriatic arthropathy
  13. CLOBETASOL [Concomitant]
     Active Substance: CLOBETASOL
     Indication: Psoriasis
     Route: 065
  14. CLOBETASOL [Concomitant]
     Active Substance: CLOBETASOL
     Indication: Psoriatic arthropathy
  15. FINASTERIDE [Concomitant]
     Active Substance: FINASTERIDE
     Indication: Psoriasis
     Route: 048
  16. FINASTERIDE [Concomitant]
     Active Substance: FINASTERIDE
     Indication: Psoriatic arthropathy
  17. FLUOCINONIDE [Concomitant]
     Active Substance: FLUOCINONIDE
     Indication: Psoriasis
     Route: 065
  18. FLUOCINONIDE [Concomitant]
     Active Substance: FLUOCINONIDE
     Indication: Psoriatic arthropathy
  19. GABAPENTIN [Concomitant]
     Active Substance: GABAPENTIN
     Indication: Psoriasis
     Route: 048
  20. GABAPENTIN [Concomitant]
     Active Substance: GABAPENTIN
     Indication: Psoriatic arthropathy
  21. INSULIN NOS [Concomitant]
     Active Substance: INSULIN NOS
     Indication: Psoriasis
     Dosage: INSULIN ASPART 100 UNIT/ML
     Route: 058
  22. INSULIN NOS [Concomitant]
     Active Substance: INSULIN NOS
     Indication: Psoriatic arthropathy
  23. KETOCONAZOLE [Concomitant]
     Active Substance: KETOCONAZOLE
     Indication: Psoriasis
     Route: 065
  24. KETOCONAZOLE [Concomitant]
     Active Substance: KETOCONAZOLE
     Indication: Psoriatic arthropathy
  25. LISINOPRIL [Concomitant]
     Active Substance: LISINOPRIL
     Indication: Psoriasis
     Dosage: LISINOPRIL-HYDROCHLOROTHIAZIDE 20-25MG
     Route: 048
  26. LISINOPRIL [Concomitant]
     Active Substance: LISINOPRIL
     Indication: Psoriatic arthropathy
  27. MELOXICAM [Concomitant]
     Active Substance: MELOXICAM
     Indication: Psoriasis
     Route: 048
  28. MELOXICAM [Concomitant]
     Active Substance: MELOXICAM
     Indication: Psoriatic arthropathy
  29. ELIDEL [Concomitant]
     Active Substance: PIMECROLIMUS
     Indication: Psoriasis
     Route: 065
  30. ELIDEL [Concomitant]
     Active Substance: PIMECROLIMUS
     Indication: Psoriatic arthropathy
  31. TIOTROPIUM [Concomitant]
     Active Substance: TIOTROPIUM
     Indication: Psoriasis
     Dosage: 18 UG (MICROGRAM)
  32. TIOTROPIUM [Concomitant]
     Active Substance: TIOTROPIUM
     Indication: Psoriatic arthropathy
  33. TRIAMCINOLONE [Concomitant]
     Active Substance: TRIAMCINOLONE
     Indication: Psoriasis
     Route: 065
  34. TRIAMCINOLONE [Concomitant]
     Active Substance: TRIAMCINOLONE
     Indication: Psoriatic arthropathy
  35. COSENTYX [Concomitant]
     Active Substance: SECUKINUMAB
     Indication: Psoriasis
     Dosage: 150 MG INJECTION
     Route: 065
  36. COSENTYX [Concomitant]
     Active Substance: SECUKINUMAB
     Indication: Psoriatic arthropathy
  37. METHOTREXATE [Concomitant]
     Active Substance: METHOTREXATE
     Indication: Psoriasis
     Route: 065
  38. METHOTREXATE [Concomitant]
     Active Substance: METHOTREXATE
     Indication: Psoriatic arthropathy
  39. AMMONIUM LACTATE [Concomitant]
     Active Substance: AMMONIUM LACTATE
     Indication: Psoriasis
     Route: 065
  40. AMMONIUM LACTATE [Concomitant]
     Active Substance: AMMONIUM LACTATE
     Indication: Psoriatic arthropathy
  41. METOPROLOL [Concomitant]
     Active Substance: METOPROLOL
     Indication: Psoriasis
     Route: 048
  42. METOPROLOL [Concomitant]
     Active Substance: METOPROLOL
     Indication: Psoriatic arthropathy

REACTIONS (1)
  - Product use in unapproved indication [Unknown]
